FAERS Safety Report 9865208 (Version 2)
Quarter: 2014Q1

REPORT INFORMATION
  Report Type: Spontaneous
  Country: US (occurrence: US)
  Receive Date: 20140203
  Receipt Date: 20140203
  Transmission Date: 20141002
  Serious: No
  Sender: FDA-Public Use
  Company Number: US-ALLERGAN-1303887US

PATIENT
  Age: 87 Year
  Sex: Female

DRUGS (7)
  1. RESTASIS [Suspect]
     Indication: DRY EYE
     Dosage: 2 GTT, UNK
     Route: 047
     Dates: start: 20130301
  2. CALTRATE                           /00108001/ [Concomitant]
     Indication: SUPPLEMENTATION THERAPY
     Dosage: UNK
  3. CENTRUM                            /00554501/ [Concomitant]
     Indication: SUPPLEMENTATION THERAPY
     Dosage: UNK
  4. VITAMIN D                          /00107901/ [Concomitant]
     Indication: SUPPLEMENTATION THERAPY
     Dosage: UNK
  5. SYNTHROID [Concomitant]
     Indication: HYPOTHYROIDISM
     Dosage: UNK
  6. LIPITOR [Concomitant]
     Indication: BLOOD CHOLESTEROL INCREASED
     Dosage: UNK
  7. REFRESH PLUS [Concomitant]
     Indication: DRY EYE
     Dosage: UNK

REACTIONS (3)
  - Abnormal sensation in eye [Recovered/Resolved]
  - Eye pruritus [Recovered/Resolved]
  - Lacrimation increased [Recovered/Resolved]
